FAERS Safety Report 26092554 (Version 2)
Quarter: 2025Q4

REPORT INFORMATION
  Report Type: Report from Study
  Country: US (occurrence: US)
  Receive Date: 20251126
  Receipt Date: 20251203
  Transmission Date: 20260118
  Serious: Yes (Other)
  Sender: ALNYLAM PHARMACEUTICALS
  Company Number: US-ALNYLAM PHARMACEUTICALS, INC.-ALN-2025-007467

PATIENT
  Age: 44 Year

DRUGS (1)
  1. AMVUTTRA [Suspect]
     Active Substance: VUTRISIRAN
     Indication: Hereditary neuropathic amyloidosis
     Dosage: UNK
     Route: 065

REACTIONS (6)
  - Thrombosis [Unknown]
  - Dyspnoea [Unknown]
  - Musculoskeletal stiffness [Unknown]
  - Product dose omission issue [Unknown]
  - Therapeutic response shortened [Unknown]
  - Ill-defined disorder [Unknown]
